FAERS Safety Report 23962491 (Version 1)
Quarter: 2024Q2

REPORT INFORMATION
  Report Type: Spontaneous
  Country: US (occurrence: US)
  Receive Date: 20240611
  Receipt Date: 20240611
  Transmission Date: 20240716
  Serious: No
  Sender: FDA-Public Use
  Company Number: US-PFIZER INC-202400190505

PATIENT
  Age: 76 Year
  Sex: Female
  Weight: 104.33 kg

DRUGS (1)
  1. VORICONAZOLE [Suspect]
     Active Substance: VORICONAZOLE
     Dosage: 200 MG, 1X/DAY
     Dates: start: 20240529

REACTIONS (3)
  - Pruritus [Unknown]
  - Fatigue [Unknown]
  - Skin exfoliation [Unknown]
